FAERS Safety Report 20852737 (Version 1)
Quarter: 2022Q2

REPORT INFORMATION
  Report Type: Spontaneous
  Country: ES (occurrence: ES)
  Receive Date: 20220520
  Receipt Date: 20220520
  Transmission Date: 20220721
  Serious: Yes (Other)
  Sender: FDA-Public Use
  Company Number: ES-AEMPS-1178011

PATIENT
  Age: 44 Year
  Sex: Female

DRUGS (9)
  1. FLUCONAZOLE [Suspect]
     Active Substance: FLUCONAZOLE
     Indication: Septic shock
     Dosage: 200 MILLIGRAM, TWO TIMES A DAY
     Route: 042
     Dates: start: 20211217, end: 20211228
  2. MEROPENEM [Suspect]
     Active Substance: MEROPENEM
     Indication: Septic shock
     Dosage: 1 GRAM, 3 TIMES A DAY
     Route: 042
     Dates: start: 20211217
  3. ACETAMINOPHEN [Suspect]
     Active Substance: ACETAMINOPHEN
     Indication: Pain
     Dosage: UNK
     Route: 042
     Dates: start: 20211223, end: 20211230
  4. ENOXAPARIN SODIUM [Suspect]
     Active Substance: ENOXAPARIN SODIUM
     Indication: Thrombosis prophylaxis
     Dosage: 40 MILLIGRAM, ONCE A DAY
     Route: 058
     Dates: start: 20211218
  5. DAPTOMYCIN [Suspect]
     Active Substance: DAPTOMYCIN
     Indication: Septic shock
     Dosage: UNK
     Route: 042
     Dates: start: 20211220
  6. PHYTONADIONE [Suspect]
     Active Substance: PHYTONADIONE
     Indication: Coagulopathy
     Dosage: UNK
     Route: 042
     Dates: start: 20211217
  7. DEXPANTHENOL [Suspect]
     Active Substance: DEXPANTHENOL
     Indication: Vitamin B complex deficiency
     Dosage: UNK
     Route: 042
     Dates: start: 20211217
  8. METOCLOPRAMIDE [Suspect]
     Active Substance: METOCLOPRAMIDE
     Indication: Nausea
     Dosage: UNK
     Route: 042
     Dates: start: 20211218
  9. FUROSEMIDE [Concomitant]
     Active Substance: FUROSEMIDE
     Indication: Acoustic shock
     Dosage: UNK
     Route: 042
     Dates: start: 20211217, end: 20211228

REACTIONS (1)
  - Acute generalised exanthematous pustulosis [Recovered/Resolved]

NARRATIVE: CASE EVENT DATE: 20211228
